FAERS Safety Report 6278567-0 (Version None)
Quarter: 2009Q3

REPORT INFORMATION
  Report Type: 
  Country: None (occurrence: None)
  Receive Date: 20090722
  Receipt Date: 20081001
  Transmission Date: 20100115
  Serious: No
  Sender: FDA-Public Use
  Company Number: US-BAUSCH-2008BL004218

PATIENT
  Age: 57 Year
  Sex: Male

DRUGS (10)
  1. OPCON-A [Suspect]
     Indication: OCULAR HYPERAEMIA
     Route: 047
     Dates: start: 20080901, end: 20080901
  2. OPCON-A [Suspect]
     Indication: EYE ALLERGY
     Route: 047
     Dates: start: 20080901, end: 20080901
  3. OPCON-A [Suspect]
     Route: 047
     Dates: start: 20080901, end: 20080901
  4. OPCON-A [Suspect]
     Route: 047
     Dates: start: 20080901, end: 20080901
  5. TOBRADEX [Concomitant]
     Route: 047
     Dates: start: 20080730
  6. VALTREX /UNK/ [Concomitant]
  7. DIOVAN [Concomitant]
  8. LIPITOR [Concomitant]
  9. CLONIDINE [Concomitant]
  10. VYTORIN [Concomitant]

REACTIONS (2)
  - EYE IRRITATION [None]
  - LACRIMATION INCREASED [None]
